FAERS Safety Report 12908598 (Version 2)
Quarter: 2017Q1

REPORT INFORMATION
  Report Type: Spontaneous
  Country: US (occurrence: US)
  Receive Date: 20161103
  Receipt Date: 20170202
  Transmission Date: 20170428
  Serious: No
  Sender: FDA-Public Use
  Company Number: US-IMPAX LABORATORIES, INC-2016-IPXL-00937

PATIENT
  Age: 82 Year
  Sex: Male
  Weight: 75 kg

DRUGS (6)
  1. RYTARY [Suspect]
     Active Substance: CARBIDOPA\LEVODOPA
     Dosage: (48.75/195 MG) 2 CAPSULES IN THE MORNING AND REST OF THE DAY 3 CAPSULES
     Route: 048
     Dates: start: 20160823, end: 20160823
  2. RYTARY [Suspect]
     Active Substance: CARBIDOPA\LEVODOPA
     Indication: PARKINSON^S DISEASE
     Dosage: (48.75/195 MG) THREE CAPSULES THREE TIMES A DAY
     Route: 048
     Dates: start: 20160815, end: 2016
  3. BYSTOLIC [Concomitant]
     Active Substance: NEBIVOLOL HYDROCHLORIDE
     Indication: HYPERTENSION
     Dosage: 2.5 MG ONCE A DAY IN MORNING
     Route: 065
  4. RYTARY [Suspect]
     Active Substance: CARBIDOPA\LEVODOPA
     Dosage: (48.75/195 MG) 2 CAPSULES IN THE MORNING
     Route: 048
     Dates: start: 20160824, end: 2016
  5. RYTARY [Suspect]
     Active Substance: CARBIDOPA\LEVODOPA
     Dosage: 36.25/145 MG; 3 CAPSULES EVERY SIX HOURS, 3 /DAY
     Route: 048
  6. AZOR [Concomitant]
     Active Substance: AMLODIPINE BESYLATE\OLMESARTAN MEDOXOMIL
     Indication: HYPERTENSION
     Dosage: 5/20 MG,ONCE A DAY IN MORNING
     Route: 065

REACTIONS (7)
  - Drug effect decreased [Unknown]
  - Expired product administered [Unknown]
  - Underdose [Unknown]
  - Dyskinesia [Unknown]
  - Nausea [Recovered/Resolved]
  - Dizziness [Unknown]
  - Freezing phenomenon [Unknown]

NARRATIVE: CASE EVENT DATE: 201608
